FAERS Safety Report 4486380-X (Version None)
Quarter: 2004Q4

REPORT INFORMATION
  Report Type: 
  Country: None (occurrence: None)
  Receive Date: 20041026
  Receipt Date: 20041026
  Transmission Date: 20050328
  Serious: Yes (Hospitalization)
  Sender: FDA-Public Use
  Company Number: None

PATIENT
  Age: 55 Year
  Sex: Female
  Weight: 92.0802 kg

DRUGS (1)
  1. DILANTIN [Suspect]
     Dosage: 3 CAPSULES  DAILY
     Dates: start: 20040914, end: 20041007

REACTIONS (1)
  - STEVENS-JOHNSON SYNDROME [None]
